FAERS Safety Report 10153423 (Version 1)
Quarter: 2014Q2

REPORT INFORMATION
  Report Type: Spontaneous
  Country: US (occurrence: US)
  Receive Date: 20140505
  Receipt Date: 20140505
  Transmission Date: 20141212
  Serious: No
  Sender: FDA-Public Use
  Company Number: US-ASTRAZENECA-2013SE65694

PATIENT
  Age: 84 Year
  Sex: Male
  Weight: 72.6 kg

DRUGS (14)
  1. PRILOSEC [Suspect]
     Indication: GASTROOESOPHAGEAL REFLUX DISEASE
     Route: 048
     Dates: start: 1998, end: 201211
  2. PRILOSEC [Suspect]
     Indication: GASTROOESOPHAGEAL REFLUX DISEASE
     Route: 048
     Dates: start: 20130423, end: 201306
  3. TRIAMTERENE HCTZ [Suspect]
     Indication: BLOOD PRESSURE ABNORMAL
     Dosage: 37.5 25MG QAM
     Route: 048
     Dates: start: 1988
  4. ZEGRID [Concomitant]
     Indication: GASTROOESOPHAGEAL REFLUX DISEASE
     Route: 048
     Dates: start: 201306
  5. TUMS [Concomitant]
     Indication: MINERAL SUPPLEMENTATION
     Route: 048
     Dates: start: 1998
  6. VITAMIN D [Concomitant]
     Indication: BONE DISORDER
     Route: 048
  7. MAGNESIUM [Concomitant]
     Indication: BONE DISORDER
     Route: 048
     Dates: start: 2011
  8. GLUCOSAMINE [Concomitant]
     Indication: BONE DISORDER
     Route: 048
     Dates: start: 2003
  9. FISH OIL [Concomitant]
     Indication: EYELID DISORDER
     Dosage: 2 BID
     Route: 048
     Dates: start: 201303
  10. MULTI VITAMIN [Concomitant]
     Indication: VITAMIN SUPPLEMENTATION
     Dosage: 1 DAILY
     Route: 048
  11. LOPID [Concomitant]
     Route: 048
     Dates: start: 1998
  12. DOXAZOSIN [Concomitant]
     Indication: BLOOD PRESSURE ABNORMAL
     Route: 048
     Dates: start: 1988
  13. BABY ASPIRIN [Concomitant]
     Indication: CARDIAC DISORDER
     Dosage: 1 QAM
     Route: 048
     Dates: start: 2003
  14. ZANTAC [Concomitant]
     Indication: GASTROOESOPHAGEAL REFLUX DISEASE
     Dosage: 2 BID
     Route: 048
     Dates: start: 201212, end: 201304

REACTIONS (8)
  - Dysphonia [Not Recovered/Not Resolved]
  - Increased upper airway secretion [Not Recovered/Not Resolved]
  - Osteopenia [Not Recovered/Not Resolved]
  - Skin irritation [Unknown]
  - Productive cough [Not Recovered/Not Resolved]
  - Oesophageal disorder [Unknown]
  - Dyspepsia [Not Recovered/Not Resolved]
  - Drug ineffective [Unknown]
